FAERS Safety Report 13644624 (Version 1)
Quarter: 2017Q2

REPORT INFORMATION
  Report Type: Spontaneous
  Country: US (occurrence: US)
  Receive Date: 20170612
  Receipt Date: 20170612
  Transmission Date: 20170830
  Serious: No
  Sender: FDA-Public Use
  Company Number: US-ROCHE-1190597

PATIENT
  Sex: Female

DRUGS (1)
  1. XELODA [Suspect]
     Active Substance: CAPECITABINE
     Indication: PRODUCT USED FOR UNKNOWN INDICATION
     Dosage: LAST DOSE ADMINISTERED : 01/FEB/2013
     Route: 065

REACTIONS (4)
  - Drug effect decreased [Unknown]
  - Liver injury [Unknown]
  - Neoplasm [Unknown]
  - Hepatic enzyme increased [Unknown]
